FAERS Safety Report 13604188 (Version 1)
Quarter: 2017Q2

REPORT INFORMATION
  Report Type: Report from Study
  Country: DE (occurrence: DE)
  Receive Date: 20170602
  Receipt Date: 20170602
  Transmission Date: 20170830
  Serious: Yes (Hospitalization)
  Sender: FDA-Public Use
  Company Number: DE-ROCHE-1941559

PATIENT
  Age: 66 Year
  Sex: Male
  Weight: 61.3 kg

DRUGS (8)
  1. MYCOPHENOLATE MOFETIL. [Suspect]
     Active Substance: MYCOPHENOLATE MOFETIL
     Indication: RENAL TRANSPLANT
     Dosage: MOST RECENT DOSE: 29/APR/2016
     Route: 048
     Dates: start: 20150819
  2. PREDNISON [Concomitant]
     Active Substance: PREDNISONE
     Dosage: MOST RECENT DOSE: 29/APR/2016
     Route: 065
     Dates: start: 20150819
  3. AMLODIPIN [Concomitant]
     Active Substance: AMLODIPINE BESYLATE
  4. ERYPO [Concomitant]
  5. FERRO-SANOL DUODENAL [Concomitant]
     Active Substance: FERROUS GLYCINE SULFATE
  6. DILATREND [Concomitant]
     Active Substance: CARVEDILOL
  7. DELIX (GERMANY) [Concomitant]
  8. PROGRAF [Suspect]
     Active Substance: TACROLIMUS\TACROLIMUS ANHYDROUS
     Indication: RENAL TRANSPLANT
     Dosage: MOST RECENT DOSE: 29/APR/2016
     Route: 048
     Dates: start: 20150819

REACTIONS (2)
  - Complications of transplanted kidney [Recovered/Resolved]
  - Salmonellosis [Recovered/Resolved]

NARRATIVE: CASE EVENT DATE: 20150911
